FAERS Safety Report 8482383 (Version 2)
Quarter: 2012Q4

REPORT INFORMATION
  Report Type: Spontaneous
  Country: US (occurrence: None)
  Receive Date: 20120323
  Receipt Date: 20121004
  Transmission Date: 20130627
  Serious: Yes (Hospitalization, Other)
  Sender: FDA-Public Use
  Company Number: AUR-APL-2012-01455

PATIENT
  Age: 45 Year
  Sex: Female
  Weight: 79.36 kg

DRUGS (5)
  1. VENLAFAXINE [Suspect]
     Indication: DEPRESSION
     Dosage: 2x150mg and  1x75mg, 1x/day;, Oral
  2. EFFEXOR XR [Suspect]
     Indication: DEPRESSION
     Dosage: 2x150mg and 1x75mg together, 1x/day, Oral
  3. PAMELOR [Suspect]
     Indication: DEPRESSION
  4. PROZAC [Suspect]
     Indication: DEPRESSION
  5. AVONEX [Suspect]
     Indication: MULTIPLE SCLEROSIS

REACTIONS (5)
  - Depression [None]
  - Anxiety [None]
  - Nervousness [None]
  - Product substitution issue [None]
  - Condition aggravated [None]
